FAERS Safety Report 9502353 (Version 1)
Quarter: 2013Q3

REPORT INFORMATION
  Report Type: Spontaneous
  Country: CA (occurrence: CA)
  Receive Date: 20130906
  Receipt Date: 20130906
  Transmission Date: 20140515
  Serious: Yes (Life-Threatening)
  Sender: FDA-Public Use
  Company Number: CA-ROCHE-1271057

PATIENT
  Age: 24 Year
  Sex: Female
  Weight: 80 kg

DRUGS (7)
  1. CEFTRIAXONE [Suspect]
     Indication: PRODUCT USED FOR UNKNOWN INDICATION
     Route: 042
  2. NAPROXEN [Concomitant]
     Route: 048
  3. ACETAMINOPHEN [Concomitant]
     Route: 048
  4. CODEINE [Concomitant]
     Route: 048
  5. DIMENHYDRINATE [Concomitant]
     Route: 042
  6. HYDROMORPHONE [Concomitant]
     Route: 048
  7. HYDROMORPHONE [Concomitant]
     Route: 042

REACTIONS (3)
  - Lip oedema [Recovered/Resolved]
  - Respiratory distress [Recovered/Resolved]
  - Tongue oedema [Recovered/Resolved]
